FAERS Safety Report 5600898-5 (Version None)
Quarter: 2007Q4

REPORT INFORMATION
  Report Type: 
  Country: None (occurrence: None)
  Receive Date: 20071228
  Receipt Date: 20061226
  Transmission Date: 20080405
  Serious: Yes (Hospitalization)
  Sender: FDA-Public Use
  Company Number: 20060276

PATIENT
  Age: 44 Year
  Sex: Female

DRUGS (1)
  1. VENOFER [Suspect]
     Indication: IRON DEFICIENCY
     Dosage: 500 MG IN 500 ML INTRAVENOUS DRIP
     Route: 041
     Dates: start: 20061219, end: 20061219

REACTIONS (3)
  - ASTHENIA [None]
  - MUSCLE SPASMS [None]
  - PRURITUS [None]
